FAERS Safety Report 19762589 (Version 1)
Quarter: 2021Q3

REPORT INFORMATION
  Report Type: Spontaneous
  Country: US (occurrence: US)
  Receive Date: 20210830
  Receipt Date: 20210830
  Transmission Date: 20211014
  Serious: No
  Sender: FDA-Public Use
  Company Number: US-ORGANON-O2108USA001548

PATIENT
  Age: 17 Year
  Sex: Female
  Weight: 113.83 kg

DRUGS (2)
  1. NEXPLANON [Suspect]
     Active Substance: ETONOGESTREL
     Dosage: 1 DOSAGE FORM
     Route: 059
     Dates: start: 20210811
  2. NEXPLANON [Suspect]
     Active Substance: ETONOGESTREL
     Dosage: 1 IMPLANT OF 68 MILLIGRAM IN THE LEFT UPPER ARM
     Route: 059
     Dates: start: 20201007, end: 20210811

REACTIONS (1)
  - Device kink [Recovered/Resolved]

NARRATIVE: CASE EVENT DATE: 20210811
